FAERS Safety Report 6989761-5 (Version None)
Quarter: 2010Q3

REPORT INFORMATION
  Report Type: 
  Country: None (occurrence: None)
  Receive Date: 20100916
  Receipt Date: 20100224
  Transmission Date: 20110219
  Serious: Yes (Other)
  Sender: FDA-Public Use
  Company Number: US-PFIZER INC-2010026680

PATIENT
  Sex: Female
  Weight: 90.703 kg

DRUGS (4)
  1. LYRICA [Suspect]
     Indication: FIBROMYALGIA
     Dosage: 75 MG, 2X/DAY
     Dates: start: 20080901
  2. LYRICA [Suspect]
     Dosage: 150 MG, 1X/DAY
  3. WELLBUTRIN [Concomitant]
     Dosage: 200 MG, 1X/DAY
  4. ALPRAZOLAM [Concomitant]
     Dosage: 4 MG, 1X/DAY

REACTIONS (9)
  - CONFUSIONAL STATE [None]
  - CONSTIPATION [None]
  - DISTURBANCE IN ATTENTION [None]
  - DIZZINESS [None]
  - IMPAIRED WORK ABILITY [None]
  - JOINT SWELLING [None]
  - MEMORY IMPAIRMENT [None]
  - SPEECH DISORDER [None]
  - WEIGHT INCREASED [None]
